FAERS Safety Report 11804995 (Version 1)
Quarter: 2015Q4

REPORT INFORMATION
  Report Type: Spontaneous
  Country: US (occurrence: US)
  Receive Date: 20151205
  Receipt Date: 20151205
  Transmission Date: 20160305
  Serious: No
  Sender: FDA-Public Use
  Company Number: US-BAUSCH-BL-2014-010973

PATIENT
  Age: 53 Year
  Sex: Male

DRUGS (3)
  1. XENAZINE [Suspect]
     Active Substance: TETRABENAZINE
     Indication: HUNTINGTON^S DISEASE
     Route: 048
     Dates: start: 20141202
  2. XENAZINE [Suspect]
     Active Substance: TETRABENAZINE
     Dosage: TWO TABLETS ONCE A DAY
     Route: 048
     Dates: start: 20141209
  3. XENAZINE [Suspect]
     Active Substance: TETRABENAZINE
     Dosage: THREE TABLETS ONCE A DAY
     Route: 048
     Dates: start: 201412

REACTIONS (1)
  - Drug administration error [Unknown]

NARRATIVE: CASE EVENT DATE: 201412
